FAERS Safety Report 7475686-8 (Version None)
Quarter: 2011Q2

REPORT INFORMATION
  Report Type: 
  Country: None (occurrence: None)
  Receive Date: 20110512
  Receipt Date: 20110509
  Transmission Date: 20111010
  Serious: Yes (Hospitalization, Other)
  Sender: FDA-Public Use
  Company Number: US-ELI_LILLY_AND_COMPANY-US200910005204

PATIENT
  Sex: Male

DRUGS (15)
  1. LANTUS [Concomitant]
     Dosage: 100 U, EACH EVENING
     Route: 058
  2. ACTOS [Concomitant]
     Dosage: 30 MG, QD
     Route: 048
  3. MIRAPEX [Concomitant]
     Dosage: 0.5 MG, QD
     Route: 048
  4. OMEPRAZOLE [Concomitant]
     Dosage: 20 MG, QD
     Route: 048
  5. ALLOPURINOL [Concomitant]
     Dosage: 300 MG, QD
     Route: 048
  6. LIPITOR [Concomitant]
     Dosage: 20 MG, QD
     Route: 048
  7. BYETTA [Suspect]
     Indication: DIABETES MELLITUS
     Dosage: 10 UG, BID
     Dates: start: 20070316, end: 20080927
  8. ASPIRIN [Concomitant]
     Dosage: 325 MG, QD
     Route: 048
  9. TRICOR [Concomitant]
     Dosage: 145 MG, QD
     Route: 048
  10. MULTI-VITAMIN [Concomitant]
     Dosage: 1 UNK, UNK
     Route: 048
  11. METFORMIN HCL [Concomitant]
     Dosage: 1000 MG, BID
     Route: 048
  12. SUCRALFATE [Concomitant]
     Dosage: 1 G, QID
     Route: 048
  13. ENALAPRIL MALEATE [Concomitant]
     Dosage: 5 MG, QD
     Route: 048
  14. METOCLOPRAMIDE HCL [Concomitant]
     Dosage: 10 MG, PRN
     Route: 048
  15. HYDROCHLOROTHIAZIDE [Concomitant]
     Dosage: 25 MG, QD
     Route: 048

REACTIONS (3)
  - PANCREATITIS ACUTE [None]
  - OFF LABEL USE [None]
  - PANCREATITIS [None]
